FAERS Safety Report 5748381-0 (Version None)
Quarter: 2008Q2

REPORT INFORMATION
  Report Type: 
  Country: None (occurrence: None)
  Receive Date: 20080523
  Receipt Date: 20080512
  Transmission Date: 20081010
  Serious: Yes (Hospitalization, Other)
  Sender: FDA-Public Use
  Company Number: US-PFIZER INC-2008034682

PATIENT
  Sex: Male
  Weight: 80 kg

DRUGS (6)
  1. SUTENT [Suspect]
     Indication: METASTATIC RENAL CELL CARCINOMA
     Dosage: TEXT:50MG, 37.5MG, 25MG, 12.5MG
     Dates: start: 20070801, end: 20080314
  2. LEVOTHYROXINE SODIUM [Concomitant]
  3. FINASTERIDE [Concomitant]
  4. PRAVASTATIN [Concomitant]
  5. TOPROL-XL [Concomitant]
  6. ACETYLSALICYLIC ACID SRT [Concomitant]
     Dates: start: 20070501, end: 20071201

REACTIONS (10)
  - CYSTITIS RADIATION [None]
  - DIVERTICULUM INTESTINAL [None]
  - GASTROENTERITIS RADIATION [None]
  - GASTROINTESTINAL TELANGIECTASIA [None]
  - HAEMATOCHEZIA [None]
  - HAEMATURIA [None]
  - HAEMORRHOIDS [None]
  - PROCTALGIA [None]
  - RECTAL HAEMORRHAGE [None]
  - RECTAL ULCER [None]
